FAERS Safety Report 8868715 (Version 1)
Quarter: 2012Q4

REPORT INFORMATION
  Report Type: 
  Country: US (occurrence: US)
  Receive Date: 20121026
  Receipt Date: 20121026
  Transmission Date: 20130627
  Serious: No
  Sender: FDA-Public Use
  Company Number: US-AMGEN-USASP2012047611

PATIENT
  Sex: Female

DRUGS (7)
  1. ENBREL [Suspect]
     Indication: PSORIATIC ARTHROPATHY
     Dosage: UNK
  2. PLAQUENIL                          /00072602/ [Concomitant]
     Dosage: 200 mg, UNK
  3. LAMICTAL [Concomitant]
     Dosage: 200 mg, UNK
  4. PROZAC [Concomitant]
     Dosage: 20 mg, UNK
  5. DICLOFENAC [Concomitant]
     Dosage: 25 mg, DR
  6. CONCERTA [Concomitant]
     Dosage: 36 mg, UNK
  7. XYREM [Concomitant]
     Dosage: 500 mg, SOL UNK

REACTIONS (2)
  - Psoriatic arthropathy [Unknown]
  - Drug ineffective [Unknown]
